FAERS Safety Report 6890547-0 (Version None)
Quarter: 2010Q3

REPORT INFORMATION
  Report Type: 
  Country: None (occurrence: None)
  Receive Date: 20100731
  Receipt Date: 20081201
  Transmission Date: 20110219
  Serious: No
  Sender: FDA-Public Use
  Company Number: US-PFIZER INC-2008101352

PATIENT
  Sex: Female
  Weight: 45.454 kg

DRUGS (6)
  1. LIPITOR [Suspect]
     Indication: BLOOD CHOLESTEROL INCREASED
     Dates: start: 20080101
  2. CARVEDILOL [Concomitant]
  3. SERTRALINE HCL [Concomitant]
  4. SYNTHROID [Concomitant]
     Dosage: ^50MG^
  5. KEPPRA [Concomitant]
  6. DETROL [Concomitant]

REACTIONS (3)
  - BACK PAIN [None]
  - MUSCULOSKELETAL PAIN [None]
  - PAIN IN EXTREMITY [None]
